FAERS Safety Report 18399615 (Version 1)
Quarter: 2020Q4

REPORT INFORMATION
  Report Type: Spontaneous
  Country: FR (occurrence: FR)
  Receive Date: 20201019
  Receipt Date: 20201019
  Transmission Date: 20210114
  Serious: Yes (Other)
  Sender: FDA-Public Use
  Company Number: FR-MYLANLABS-2020M1087550

PATIENT
  Age: 88 Year
  Sex: Male

DRUGS (1)
  1. PREDNISOLONE. [Suspect]
     Active Substance: PREDNISOLONE
     Indication: PNEUMONIA
     Dosage: 80 MILLIGRAM, QD (DOSE PRESCRITE 40MG/J)
     Route: 048
     Dates: start: 20200923, end: 20200926

REACTIONS (2)
  - Diabetes mellitus inadequate control [Unknown]
  - Incorrect dose administered [Recovered/Resolved]

NARRATIVE: CASE EVENT DATE: 20200923
